FAERS Safety Report 10044857 (Version 2)
Quarter: 2014Q2

REPORT INFORMATION
  Report Type: Spontaneous
  Country: DE (occurrence: DE)
  Receive Date: 20140328
  Receipt Date: 20140501
  Transmission Date: 20141212
  Serious: Yes (Other)
  Sender: FDA-Public Use
  Company Number: DE-WATSON-2014-05581

PATIENT
  Sex: Female
  Weight: 64 kg

DRUGS (12)
  1. CARBOPLATIN ACTAVIS [Suspect]
     Indication: NEOPLASM
     Dosage: 570 MG, DAILY
     Route: 042
     Dates: start: 20131220, end: 20131220
  2. CARBOPLATIN ACTAVIS [Suspect]
     Dosage: 570 MG, DAILY
     Route: 042
     Dates: start: 20140110, end: 20140110
  3. CARBOPLATIN ACTAVIS [Suspect]
     Dosage: 470 MG, DAILY
     Route: 042
     Dates: start: 20140307, end: 20140307
  4. PACLITAXEL FRESENIUS KABI [Concomitant]
     Indication: PRODUCT USED FOR UNKNOWN INDICATION
     Dosage: 154 MG, UNK
     Dates: start: 20131220, end: 20131220
  5. PACLITAXEL FRESENIUS KABI [Concomitant]
     Dosage: 154 MG, UNK
     Dates: start: 20131227, end: 20131227
  6. ABRAXANE [Concomitant]
     Indication: PRODUCT USED FOR UNKNOWN INDICATION
     Dosage: 100 MG, UNK
     Route: 042
     Dates: start: 20140103, end: 20140103
  7. ABRAXANE [Concomitant]
     Dosage: 141 MG, UNK
     Route: 042
     Dates: start: 20140103, end: 20140103
  8. ABRAXANE [Concomitant]
     Dosage: 241 MG, UNK
     Route: 042
     Dates: start: 20140110, end: 20140110
  9. ABRAXANE [Concomitant]
     Dosage: 241 MG, UNK
     Route: 042
     Dates: start: 20140117, end: 20140117
  10. ABRAXANE [Concomitant]
     Dosage: 233 MG, UNK
     Route: 042
     Dates: start: 20140124, end: 20140124
  11. GEMCITABIN HEXAL [Concomitant]
     Indication: PRODUCT USED FOR UNKNOWN INDICATION
     Dosage: 1780 MG, UNK
     Route: 042
     Dates: start: 20140307, end: 20140307
  12. AVASTIN                            /00848101/ [Concomitant]
     Indication: PRODUCT USED FOR UNKNOWN INDICATION
     Dosage: 960 MG, UNK
     Route: 042
     Dates: start: 20140307, end: 20140307

REACTIONS (2)
  - Neoplasm progression [Not Recovered/Not Resolved]
  - Drug ineffective [Not Recovered/Not Resolved]
